FAERS Safety Report 7533059-3 (Version None)
Quarter: 2011Q2

REPORT INFORMATION
  Report Type: 
  Country: None (occurrence: None)
  Receive Date: 20110608
  Receipt Date: 20110603
  Transmission Date: 20111010
  Serious: Yes (Hospitalization)
  Sender: FDA-Public Use
  Company Number: JP-ABBOTT-10P-087-0693185-00

PATIENT
  Sex: Female
  Weight: 36 kg

DRUGS (13)
  1. HUMIRA [Suspect]
     Indication: RHEUMATOID ARTHRITIS
     Route: 058
     Dates: start: 20090511, end: 20101129
  2. TELMISARTAN [Concomitant]
     Indication: PRODUCT USED FOR UNKNOWN INDICATION
     Route: 048
     Dates: end: 20101217
  3. ALFACALCIDOL [Concomitant]
     Indication: OSTEOPOROSIS PROPHYLAXIS
     Dosage: DAILY
  4. PYRIDOXAL PHOSPHATE [Concomitant]
     Indication: ADVERSE DRUG REACTION
  5. OMEPRAZOLE [Concomitant]
     Indication: GASTRIC ULCER
     Route: 048
  6. METHOTREXATE [Concomitant]
     Indication: PRODUCT USED FOR UNKNOWN INDICATION
     Dates: start: 20090401, end: 20090925
  7. ISONIAZID [Concomitant]
     Indication: ANTIBIOTIC PROPHYLAXIS
  8. FERROUS CITRATE [Concomitant]
     Indication: PRODUCT USED FOR UNKNOWN INDICATION
     Dosage: DAILY
  9. ZOLPIDEM TARTRATE [Concomitant]
     Indication: INSOMNIA
     Route: 048
  10. AMLODIPINE BESYLATE [Concomitant]
     Indication: HYPERTENSION
     Route: 048
     Dates: start: 20101217, end: 20101220
  11. CELECOXIB [Concomitant]
     Indication: RHEUMATOID ARTHRITIS
     Dosage: DAILY
     Route: 048
  12. PYRIDOXAL PHOSPHATE [Concomitant]
     Indication: PROPHYLAXIS
  13. MAGNESIUM OXIDE [Concomitant]
     Indication: CONSTIPATION
     Route: 048

REACTIONS (7)
  - PNEUMONIA [None]
  - PRURITUS [None]
  - OROPHARYNGEAL PAIN [None]
  - OROPHARYNGEAL CANDIDIASIS [None]
  - CELLULITIS [None]
  - INFLAMMATION [None]
  - LYMPHADENITIS [None]
